FAERS Safety Report 10078892 (Version 3)
Quarter: 2014Q2

REPORT INFORMATION
  Report Type: Spontaneous
  Country: JP (occurrence: JP)
  Receive Date: 20140415
  Receipt Date: 20140606
  Transmission Date: 20141212
  Serious: Yes (Other)
  Sender: FDA-Public Use
  Company Number: JP-PFIZER INC-2014100240

PATIENT
  Age: 44 Year
  Sex: Male

DRUGS (4)
  1. CORTRIL [Suspect]
     Dosage: AT AGE 44, 2.5 MG, DAILY
     Route: 048
  2. METHYLPREDNISOLONE [Suspect]
     Dosage: AT AGE 38; 12 MG, DAILY THREE TIMES A WEEK
  3. METHYLPREDNISOLONE [Suspect]
     Dosage: AT AGE 39; 4 MG, DAILY THREE TIMES A WEEK
  4. PREDNISOLONE [Suspect]
     Dosage: 5 MG, DAILY AT AGE 40

REACTIONS (1)
  - Adrenal insufficiency [Unknown]
